FAERS Safety Report 10418906 (Version 4)
Quarter: 2014Q4

REPORT INFORMATION
  Report Type: Report from Study
  Country: US (occurrence: US)
  Receive Date: 20140829
  Receipt Date: 20141017
  Transmission Date: 20150528
  Serious: Yes (Other)
  Sender: FDA-Public Use
  Company Number: US-ACTELION-A-US2014-104504

PATIENT
  Age: 71 Year
  Sex: Female

DRUGS (5)
  1. REVATIO [Concomitant]
     Active Substance: SILDENAFIL CITRATE
  2. COUMADIN [Concomitant]
     Active Substance: WARFARIN SODIUM
  3. VENTAVIS [Suspect]
     Active Substance: ILOPROST
     Indication: PULMONARY ARTERIAL HYPERTENSION
     Dosage: 5 MCG, 6-9 X/DAILY
     Route: 055
     Dates: start: 20140627
  4. LETAIRIS [Suspect]
     Active Substance: AMBRISENTAN
     Indication: PRODUCT USED FOR UNKNOWN INDICATION
     Dosage: 10 MG, QD
     Route: 065
     Dates: start: 20110726
  5. OXYGEN. [Suspect]
     Active Substance: OXYGEN
     Indication: PRODUCT USED FOR UNKNOWN INDICATION
     Route: 065

REACTIONS (5)
  - Dysgeusia [Unknown]
  - Atrial fibrillation [Unknown]
  - Rash [Unknown]
  - Pruritus [Unknown]
  - Somnolence [Unknown]
